FAERS Safety Report 8590262-1 (Version None)
Quarter: 2012Q3

REPORT INFORMATION
  Report Type: 
  Country: None (occurrence: None)
  Receive Date: 20120813
  Receipt Date: 20120809
  Transmission Date: 20120928
  Serious: Yes (Hospitalization, Other)
  Sender: FDA-Public Use
  Company Number: US-GLAXOSMITHKLINE-A0953944A

PATIENT
  Age: 42 Year
  Sex: Female
  Weight: 76 kg

DRUGS (8)
  1. LEVEMIR [Concomitant]
  2. FLOLAN [Suspect]
     Indication: PULMONARY ARTERIAL HYPERTENSION
     Dosage: 36NGKM CONTINUOUS
     Dates: start: 20100707
  3. PROCHLORPERAZINE [Concomitant]
  4. HUMALOG [Concomitant]
  5. ASPIRIN [Concomitant]
  6. HYDRALAZINE HCL [Concomitant]
  7. SENSIPAR [Concomitant]
  8. CLONIDINE [Concomitant]

REACTIONS (9)
  - PAIN IN JAW [None]
  - WOUND INFECTION [None]
  - NAUSEA [None]
  - DIZZINESS [None]
  - FALL [None]
  - DIARRHOEA [None]
  - MYOCARDIAL INFARCTION [None]
  - VOMITING [None]
  - MUSCULOSKELETAL PAIN [None]
